FAERS Safety Report 6575585-X (Version None)
Quarter: 2010Q1

REPORT INFORMATION
  Report Type: 
  Country: None (occurrence: None)
  Receive Date: 20100209
  Receipt Date: 20100204
  Transmission Date: 20100710
  Serious: Yes (Other)
  Sender: FDA-Public Use
  Company Number: A0838309A

PATIENT
  Age: 34 Year
  Sex: Female

DRUGS (5)
  1. LAMICTAL XR [Suspect]
     Indication: EPILEPSY
     Dosage: 200MG PER DAY
     Route: 048
     Dates: start: 20091001
  2. MIRENA [Concomitant]
  3. TOPAMAX [Concomitant]
  4. OVCON-35 [Concomitant]
  5. LAMOTRIGINE [Concomitant]
     Indication: EPILEPSY
     Route: 048

REACTIONS (8)
  - AGGRESSION [None]
  - MENSTRUAL DISORDER [None]
  - NAUSEA [None]
  - OLIGOMENORRHOEA [None]
  - PANIC ATTACK [None]
  - PSYCHIATRIC SYMPTOM [None]
  - RETCHING [None]
  - VOMITING IN PREGNANCY [None]
